FAERS Safety Report 7792468-8 (Version None)
Quarter: 2011Q4

REPORT INFORMATION
  Report Type: 
  Country: None (occurrence: None)
  Receive Date: 20111003
  Receipt Date: 20110920
  Transmission Date: 20120403
  Serious: Yes (Other)
  Sender: FDA-Public Use
  Company Number: ES-CELGENEUS-144-20785-11070431

PATIENT
  Age: 17 Year
  Sex: Male

DRUGS (11)
  1. THALIDOMIDE [Suspect]
     Dosage: 100 MILLIGRAM
     Route: 048
     Dates: start: 20060426, end: 20070301
  2. THALIDOMIDE [Suspect]
     Dosage: 150 MILLIGRAM
     Route: 048
     Dates: start: 20070323, end: 20070801
  3. THALIDOMIDE [Suspect]
     Dosage: 100 MILLIGRAM
     Route: 048
     Dates: start: 20080319, end: 20091201
  4. PANTOPRAZOLE [Concomitant]
     Route: 065
  5. OMEPRAZOLE [Concomitant]
     Route: 065
  6. LEDERFOLIN [Concomitant]
     Route: 065
  7. THALIDOMIDE [Suspect]
     Dosage: 100 MILLIGRAM
     Route: 048
     Dates: start: 20070816, end: 20080301
  8. METHOTREXATE [Concomitant]
     Route: 065
  9. PREDNISONE [Concomitant]
     Route: 065
  10. ESCITALOPRAM [Concomitant]
     Route: 065
  11. COLCHICINE [Concomitant]
     Route: 065

REACTIONS (4)
  - DRUG INTOLERANCE [None]
  - OESOPHAGEAL STENOSIS [None]
  - BEHCET'S SYNDROME [None]
  - OESOPHAGEAL ULCER [None]
